FAERS Safety Report 17200715 (Version 2)
Quarter: 2020Q1

REPORT INFORMATION
  Report Type: Report from Study
  Country: None (occurrence: CA)
  Receive Date: 20191226
  Receipt Date: 20200323
  Transmission Date: 20200409
  Serious: Yes (Other)
  Sender: FDA-Public Use
  Company Number: CA-ABBVIE-19K-028-3207384-00

PATIENT
  Age: 39 Year
  Sex: Male

DRUGS (2)
  1. HUMIRA [Suspect]
     Active Substance: ADALIMUMAB
     Indication: CROHN^S DISEASE
     Route: 058
     Dates: start: 20180503, end: 2019
  2. HUMIRA [Suspect]
     Active Substance: ADALIMUMAB
     Route: 058
     Dates: start: 20191207

REACTIONS (11)
  - Small intestinal stenosis [Not Recovered/Not Resolved]
  - Hypoaesthesia [Recovered/Resolved]
  - Cerebral disorder [Not Recovered/Not Resolved]
  - Gastrointestinal inflammation [Unknown]
  - Arthropathy [Recovered/Resolved]
  - Monoplegia [Recovered/Resolved]
  - Oropharyngeal pain [Not Recovered/Not Resolved]
  - Crohn^s disease [Not Recovered/Not Resolved]
  - Pain in extremity [Recovered/Resolved]
  - Mobility decreased [Recovered/Resolved]
  - Scar [Unknown]

NARRATIVE: CASE EVENT DATE: 2019
